FAERS Safety Report 11888183 (Version 1)
Quarter: 2016Q1

REPORT INFORMATION
  Report Type: Spontaneous
  Country: CN (occurrence: CN)
  Receive Date: 20160105
  Receipt Date: 20160105
  Transmission Date: 20160526
  Serious: Yes (Disabling)
  Sender: FDA-Public Use
  Company Number: CN-009507513-1504CHN018051

PATIENT
  Sex: Female

DRUGS (1)
  1. MARVELON [Suspect]
     Active Substance: DESOGESTREL\ETHINYL ESTRADIOL
     Dosage: UNK
     Route: 048

REACTIONS (5)
  - Impaired quality of life [Unknown]
  - Endocrine disorder [Unknown]
  - Insomnia [Unknown]
  - Drug dose omission [Unknown]
  - Alopecia [Unknown]
